FAERS Safety Report 4508267-6 (Version None)
Quarter: 2004Q4

REPORT INFORMATION
  Report Type: 
  Country: None (occurrence: None)
  Receive Date: 20041123
  Receipt Date: 20031209
  Transmission Date: 20050328
  Serious: No
  Sender: FDA-Public Use
  Company Number: US-GLAXOSMITHKLINE-A0442558A

PATIENT
  Age: 66 Year
  Sex: Female

DRUGS (6)
  1. WELLBUTRIN [Suspect]
     Dosage: 150MG TWICE PER DAY
     Route: 048
     Dates: start: 20031124, end: 20031208
  2. ALTACE [Concomitant]
  3. NIASPAN [Concomitant]
  4. ACTONEL [Concomitant]
  5. CALCIUM [Concomitant]
  6. FISH OIL [Concomitant]

REACTIONS (7)
  - AGITATION [None]
  - ANOREXIA [None]
  - CONSTIPATION [None]
  - DEPRESSION [None]
  - DRY MOUTH [None]
  - INSOMNIA [None]
  - WEIGHT DECREASED [None]
